FAERS Safety Report 6428131 (Version 2)
Quarter: 2017Q2

REPORT INFORMATION
  Report Type: Spontaneous
  Country: FR (occurrence: FR)
  Receive Date: 20070926
  Receipt Date: 20170414
  Transmission Date: 20170830
  Serious: No
  Sender: FDA-Public Use
  Company Number: FR-PFIZER INC-2007077560

PATIENT
  Age: 42 Year
  Sex: Female

DRUGS (3)
  1. VOLTARENE [Suspect]
     Active Substance: DICLOFENAC SODIUM
     Dates: start: 20070302, end: 20070302
  2. MIFEGYNE [Suspect]
     Active Substance: MIFEPRISTONE
     Dates: start: 20070228, end: 20070228
  3. CYTOTEC [Suspect]
     Active Substance: MISOPROSTOL
     Dates: start: 20070302, end: 20070302

REACTIONS (1)
  - Drug ineffective for unapproved indication [Unknown]

NARRATIVE: CASE EVENT DATE: 20070302
